FAERS Safety Report 5287335-8 (Version None)
Quarter: 2007Q1

REPORT INFORMATION
  Report Type: 
  Country: None (occurrence: None)
  Receive Date: 20070116
  Receipt Date: 20061213
  Transmission Date: 20070707
  Serious: No
  Sender: FDA-Public Use
  Company Number: 2006SP004381

PATIENT
  Age: 59 Year
  Sex: Male

DRUGS (1)
  1. LUNESTA [Suspect]
     Indication: INSOMNIA
     Dosage: 3 MG;HS;ORAL
     Route: 048
     Dates: start: 20051101, end: 20061201

REACTIONS (3)
  - DYSGEUSIA [None]
  - GLOSSODYNIA [None]
  - SWOLLEN TONGUE [None]
